FAERS Safety Report 14302834 (Version 2)
Quarter: 2017Q4

REPORT INFORMATION
  Report Type: Report from Study
  Country: FR (occurrence: FR)
  Receive Date: 20171219
  Receipt Date: 20171222
  Transmission Date: 20180321
  Serious: Yes (Life-Threatening, Hospitalization)
  Sender: FDA-Public Use
  Company Number: FR-BAYER-2016-178182

PATIENT
  Age: 75 Year
  Sex: Male

DRUGS (2)
  1. REGORAFENIB [Suspect]
     Active Substance: REGORAFENIB
     Indication: COLORECTAL CANCER METASTATIC
     Dosage: 160 MG, QD
     Dates: start: 20160715, end: 20160728
  2. REGORAFENIB [Suspect]
     Active Substance: REGORAFENIB
     Indication: COLORECTAL CANCER METASTATIC
     Dosage: 80 MG, QD
     Dates: start: 20160822, end: 20160823

REACTIONS (3)
  - Hypertension [Recovered/Resolved]
  - Fall [Recovered/Resolved]
  - Nervous system disorder [Recovered/Resolved]

NARRATIVE: CASE EVENT DATE: 20160728
